FAERS Safety Report 7582686-6 (Version None)
Quarter: 2011Q2

REPORT INFORMATION
  Report Type: 
  Country: None (occurrence: None)
  Receive Date: 20110630
  Receipt Date: 20110627
  Transmission Date: 20111010
  Serious: Yes (Other)
  Sender: FDA-Public Use
  Company Number: US-AMGEN-USASP2011030896

PATIENT
  Age: 59 Year
  Sex: Female
  Weight: 93.878 kg

DRUGS (3)
  1. ELTROMBOPAG [Concomitant]
  2. NPLATE [Suspect]
     Indication: IDIOPATHIC THROMBOCYTOPENIC PURPURA
     Dosage: 8.5 A?G/KG, QWK
     Route: 058
     Dates: start: 20101231, end: 20110419
  3. CORTICOSTEROIDS [Concomitant]

REACTIONS (1)
  - THERAPEUTIC RESPONSE DECREASED [None]
